FAERS Safety Report 20011119 (Version 1)
Quarter: 2021Q4

REPORT INFORMATION
  Report Type: Spontaneous
  Country: TH (occurrence: TH)
  Receive Date: 20211029
  Receipt Date: 20211029
  Transmission Date: 20220303
  Serious: Yes (Hospitalization, Other)
  Sender: FDA-Public Use
  Company Number: TH-GLAXOSMITHKLINE-TH2021GSK220964

PATIENT
  Age: 61 Year
  Sex: Female

DRUGS (5)
  1. ROPINIROLE [Suspect]
     Active Substance: ROPINIROLE
     Indication: Parkinson^s disease
     Dosage: UNK
  2. ROPINIROLE [Suspect]
     Active Substance: ROPINIROLE
     Dosage: 4 MG, 1D
  3. BENSERAZIDE\LEVODOPA [Suspect]
     Active Substance: BENSERAZIDE\LEVODOPA
     Indication: Dyskinesia
     Dosage: 875 MG, 1D
  4. BENSERAZIDE\LEVODOPA [Suspect]
     Active Substance: BENSERAZIDE\LEVODOPA
     Indication: Parkinson^s disease
     Dosage: 500 MG, 1D
  5. ENTACAPONE [Suspect]
     Active Substance: ENTACAPONE
     Indication: Parkinson^s disease
     Dosage: 800 MG, 1D

REACTIONS (11)
  - Rhabdomyolysis [Recovering/Resolving]
  - Parkinsonism hyperpyrexia syndrome [Recovered/Resolved]
  - Acute kidney injury [Recovering/Resolving]
  - Dyskinesia [Recovered/Resolved]
  - Myalgia [Recovered/Resolved]
  - Confusional state [Recovered/Resolved]
  - Pyrexia [Recovered/Resolved]
  - Leukocytosis [Recovered/Resolved]
  - Urinary tract infection [Recovered/Resolved]
  - Myoglobinuria [Recovered/Resolved]
  - Dehydration [Recovered/Resolved]
